FAERS Safety Report 6119011-3 (Version None)
Quarter: 2009Q1

REPORT INFORMATION
  Report Type: 
  Country: None (occurrence: None)
  Receive Date: 20090316
  Receipt Date: 20090305
  Transmission Date: 20090719
  Serious: Yes (Hospitalization)
  Sender: FDA-Public Use
  Company Number: DE-BAXTER-2009BH003659

PATIENT
  Age: 60 Year
  Sex: Male
  Weight: 70 kg

DRUGS (5)
  1. GAMMAGARD LIQUID [Suspect]
     Indication: MULTIFOCAL MOTOR NEUROPATHY
     Route: 042
     Dates: start: 20081218, end: 20081218
  2. GAMMAGARD LIQUID [Suspect]
     Indication: OFF LABEL USE
     Route: 042
     Dates: start: 20081218, end: 20081218
  3. GAMMAGARD LIQUID [Suspect]
     Route: 042
     Dates: start: 20081218, end: 20081218
  4. GAMMAGARD LIQUID [Suspect]
     Route: 042
     Dates: start: 20081218, end: 20081218
  5. RINGER'S [Concomitant]
     Dates: start: 20081218

REACTIONS (2)
  - FLUSHING [None]
  - PRURITUS [None]
